FAERS Safety Report 15668414 (Version 1)
Quarter: 2018Q4

REPORT INFORMATION
  Report Type: Spontaneous
  Country: VN (occurrence: VN)
  Receive Date: 20181129
  Receipt Date: 20181129
  Transmission Date: 20190205
  Serious: Yes (Other)
  Sender: FDA-Public Use
  Company Number: VN-ROCHE-2220754

PATIENT
  Age: 53 Year
  Sex: Female

DRUGS (7)
  1. XELODA [Suspect]
     Active Substance: CAPECITABINE
     Indication: RECTAL CANCER STAGE III
     Route: 065
     Dates: start: 201512, end: 201603
  2. OXALIPLATIN. [Suspect]
     Active Substance: OXALIPLATIN
     Indication: RECTAL CANCER STAGE III
     Route: 065
     Dates: start: 201512, end: 201603
  3. XELODA [Suspect]
     Active Substance: CAPECITABINE
     Route: 065
     Dates: start: 201612
  4. IRINOTECAN [Suspect]
     Active Substance: IRINOTECAN
     Indication: RECTAL CANCER STAGE III
     Route: 065
     Dates: start: 201604, end: 201612
  5. BEVACIZUMAB. [Suspect]
     Active Substance: BEVACIZUMAB
     Indication: RECTAL CANCER STAGE III
     Route: 065
     Dates: start: 201604, end: 201612
  6. BEVACIZUMAB. [Suspect]
     Active Substance: BEVACIZUMAB
     Route: 065
     Dates: start: 201612
  7. XELODA [Suspect]
     Active Substance: CAPECITABINE
     Route: 065
     Dates: start: 201604, end: 201612

REACTIONS (15)
  - Lymphadenitis [Unknown]
  - Alanine aminotransferase increased [Unknown]
  - Abdominal pain [Unknown]
  - Haemoglobin decreased [Recovered/Resolved]
  - Rectal haemorrhage [Recovered/Resolved]
  - Off label use [Unknown]
  - Hypoaesthesia [Unknown]
  - Hypertension [Unknown]
  - Anastomotic complication [Recovered/Resolved]
  - Liver disorder [Unknown]
  - Neutrophil count decreased [Recovered/Resolved]
  - White blood cell count decreased [Unknown]
  - Aspartate aminotransferase increased [Unknown]
  - Product use in unapproved indication [Unknown]
  - Platelet count decreased [Recovered/Resolved]

NARRATIVE: CASE EVENT DATE: 201512
